FAERS Safety Report 5622176-0 (Version None)
Quarter: 2008Q1

REPORT INFORMATION
  Report Type: 
  Country: None (occurrence: None)
  Receive Date: 20080206
  Receipt Date: 20080119
  Transmission Date: 20080703
  Serious: Yes (Death, Life-Threatening, Hospitalization, Other)
  Sender: FDA-Public Use
  Company Number: ENTC2007-0376

PATIENT
  Age: 76 Year
  Sex: Male

DRUGS (7)
  1. STALEVO 100 [Suspect]
     Indication: PARKINSON'S DISEASE
     Dosage: 50 MG;BID;100 MG;Q8H;150 MG;BID
     Route: 048
     Dates: start: 20050101
  2. STALEVO 100 [Suspect]
     Indication: PARKINSON'S DISEASE
     Dosage: 50 MG;BID;100 MG;Q8H;150 MG;BID
     Route: 048
     Dates: start: 20071101
  3. STALEVO 100 [Suspect]
     Indication: PARKINSON'S DISEASE
     Dosage: 50 MG;BID;100 MG;Q8H;150 MG;BID
     Route: 048
     Dates: start: 20071206
  4. INSULIN HUMAN [Concomitant]
  5. OMEPRAZOLE [Concomitant]
  6. PROLOPA [Concomitant]
  7. BACTRIM [Suspect]
     Indication: URINARY TRACT INFECTION
     Dosage: 1 TABL/DAY
     Dates: end: 20061115

REACTIONS (14)
  - ABNORMAL BEHAVIOUR [None]
  - ANXIETY [None]
  - APHASIA [None]
  - BLOOD GLUCOSE DECREASED [None]
  - CHEST PAIN [None]
  - CONVULSION [None]
  - FEELING ABNORMAL [None]
  - ILL-DEFINED DISORDER [None]
  - INCORRECT DOSE ADMINISTERED [None]
  - INFARCTION [None]
  - ORAL INTAKE REDUCED [None]
  - PULMONARY EMBOLISM [None]
  - SKIN DISCOLOURATION [None]
  - URINARY TRACT INFECTION [None]
